FAERS Safety Report 11944148 (Version 1)
Quarter: 2016Q1

REPORT INFORMATION
  Report Type: Spontaneous
  Country: US (occurrence: US)
  Receive Date: 20160125
  Receipt Date: 20160125
  Transmission Date: 20160526
  Serious: No
  Sender: FDA-Public Use
  Company Number: US-UNITED THERAPEUTICS-UNT-2015-004056

PATIENT
  Age: 70 Year
  Sex: Male
  Weight: 83.9 kg

DRUGS (5)
  1. REMODULIN [Suspect]
     Active Substance: TREPROSTINIL
     Indication: PULMONARY ARTERIAL HYPERTENSION
     Dosage: 0.072 ?G/KG/MIN, CONTINUING
     Route: 058
     Dates: start: 20130723
  2. ADEMPAS [Suspect]
     Active Substance: RIOCIGUAT
     Indication: PRODUCT USED FOR UNKNOWN INDICATION
  3. LETAIRIS [Suspect]
     Active Substance: AMBRISENTAN
     Indication: PRODUCT USED FOR UNKNOWN INDICATION
     Dosage: 5 MG, QD
     Route: 065
     Dates: start: 20140910
  4. LETAIRIS [Suspect]
     Active Substance: AMBRISENTAN
     Dosage: 10 MG, QD
     Route: 065
     Dates: start: 20140909
  5. LETAIRIS [Suspect]
     Active Substance: AMBRISENTAN
     Dosage: 10 MG, QD
     Route: 065
     Dates: start: 20140909

REACTIONS (8)
  - Insomnia [Unknown]
  - Hypotension [Unknown]
  - Fatigue [Unknown]
  - Oedema peripheral [Unknown]
  - Vomiting [Unknown]
  - Infusion site haemorrhage [Unknown]
  - Nausea [Unknown]
  - Nasal congestion [Unknown]

NARRATIVE: CASE EVENT DATE: 201504
